FAERS Safety Report 14093928 (Version 1)
Quarter: 2017Q4

REPORT INFORMATION
  Report Type: Report from Study
  Country: BR (occurrence: BR)
  Receive Date: 20171016
  Receipt Date: 20171016
  Transmission Date: 20180321
  Serious: Yes (Other)
  Sender: FDA-Public Use
  Company Number: BR-UCBSA-2017032425

PATIENT
  Age: 51 Year
  Sex: Female
  Weight: 100 kg

DRUGS (3)
  1. CERTOLIZUMAB PEGOL [Suspect]
     Active Substance: CERTOLIZUMAB PEGOL
     Indication: PSORIATIC ARTHROPATHY
     Dosage: 2 SYRINGES EVERY 2 WEEKS
     Dates: start: 20170720, end: 201709
  2. VIMOVO [Concomitant]
     Active Substance: ESOMEPRAZOLE MAGNESIUM\NAPROXEN
     Indication: RHEUMATOID ARTHRITIS
     Dosage: MORE THAN 2 YEARS AGO; REGURLARLY 3 MONTHS AGO
     Route: 048
  3. LEVOTHYROXIN [Concomitant]
     Active Substance: LEVOTHYROXINE
     Indication: HYPOTHYROIDISM
     Dosage: 125 MG, ONCE DAILY (QD), START DATE: MORE THAN 20 YEARS AGO
     Route: 048

REACTIONS (4)
  - Injection site urticaria [Not Recovered/Not Resolved]
  - Diarrhoea [Recovered/Resolved]
  - Synovial cyst [Not Recovered/Not Resolved]
  - Arthritis [Not Recovered/Not Resolved]

NARRATIVE: CASE EVENT DATE: 2017
